FAERS Safety Report 6869006-7 (Version None)
Quarter: 2010Q3

REPORT INFORMATION
  Report Type: 
  Country: None (occurrence: None)
  Receive Date: 20100722
  Receipt Date: 20080627
  Transmission Date: 20110219
  Serious: No
  Sender: FDA-Public Use
  Company Number: US-PFIZER INC-2008054260

PATIENT
  Sex: Male
  Weight: 79.5 kg

DRUGS (3)
  1. CHANTIX [Suspect]
     Indication: SMOKING CESSATION THERAPY
     Dates: start: 20080503
  2. ATENOLOL [Concomitant]
     Indication: HYPERTENSION
  3. LYRICA [Concomitant]
     Indication: NEURALGIA

REACTIONS (1)
  - NAUSEA [None]
